FAERS Safety Report 4710078-3 (Version None)
Quarter: 2005Q3

REPORT INFORMATION
  Report Type: 
  Country: None (occurrence: None)
  Receive Date: 20050707
  Receipt Date: 20050627
  Transmission Date: 20060218
  Serious: Yes (Hospitalization, Other)
  Sender: FDA-Public Use
  Company Number: 2005093351

PATIENT
  Age: 91 Year
  Sex: Female
  Weight: 55.3388 kg

DRUGS (6)
  1. NORVASC [Suspect]
     Indication: HYPERTENSION
     Dosage: 5 MG (5 MG, 1 IN 1 D), ORAL
     Route: 048
  2. LANOXIN [Concomitant]
  3. TOPROL-XL [Concomitant]
  4. ANTIINFLAMMATORY/ANTIRHEUMATIC PRODUCTS (ANTIINFLMATORY/ANTIRHEUMATIC [Concomitant]
  5. VITAMINS 9VITAMINS0 [Concomitant]
  6. ANTIGLAUCOMA PREPARATIONS AND MIOTICS (ANTIGLAUCOMA PREPARTIONS AND MI [Concomitant]

REACTIONS (4)
  - ARTHRITIS [None]
  - BODY HEIGHT DECREASED [None]
  - DYSGEUSIA [None]
  - PHARMACEUTICAL PRODUCT COMPLAINT [None]
